FAERS Safety Report 24961883 (Version 1)
Quarter: 2025Q1

REPORT INFORMATION
  Report Type: Spontaneous
  Country: US (occurrence: None)
  Receive Date: 20250212
  Receipt Date: 20250212
  Transmission Date: 20250408
  Serious: Yes (Life-Threatening, Hospitalization)
  Sender: FDA-CTU
  Company Number: None

PATIENT
  Age: 61 Year
  Sex: Female
  Weight: 90 kg

DRUGS (10)
  1. LUNESTA [Suspect]
     Active Substance: ESZOPICLONE
     Dates: start: 20240418, end: 20240428
  2. CYMBALTA [Concomitant]
     Active Substance: DULOXETINE HYDROCHLORIDE
  3. MOUNJARO [Concomitant]
     Active Substance: TIRZEPATIDE
  4. NEURONTIN [Concomitant]
     Active Substance: GABAPENTIN
  5. PRILOSEC [Concomitant]
     Active Substance: OMEPRAZOLE MAGNESIUM
  6. lisinopril-hydroCHLOROthiazide (PRINNZIDE ZESTORETIC) [Concomitant]
  7. ZOCOR [Concomitant]
     Active Substance: SIMVASTATIN
  8. TYLENOL [Concomitant]
     Active Substance: ACETAMINOPHEN
  9. MOTRIN [Concomitant]
     Active Substance: IBUPROFEN
  10. rOPHINRIole (REQUIP) [Concomitant]

REACTIONS (4)
  - Road traffic accident [None]
  - Somnambulism [None]
  - Sternal fracture [None]
  - Concussion [None]

NARRATIVE: CASE EVENT DATE: 20240428
